FAERS Safety Report 13472418 (Version 2)
Quarter: 2020Q1

REPORT INFORMATION
  Report Type: Spontaneous
  Country: JP (occurrence: JP)
  Receive Date: 20170424
  Receipt Date: 20200330
  Transmission Date: 20200409
  Serious: Yes (Other)
  Sender: FDA-Public Use
  Company Number: JP-ASTRAZENECA-2017SE40949

PATIENT
  Age: 50 Year
  Sex: Female

DRUGS (9)
  1. GLIMEPIRIDE. [Concomitant]
     Active Substance: GLIMEPIRIDE
     Route: 048
  2. REBAMIPIDE [Concomitant]
     Active Substance: REBAMIPIDE
     Route: 048
  3. LIPITOR [Concomitant]
     Active Substance: ATORVASTATIN CALCIUM
     Route: 048
  4. GOODMIN [Concomitant]
     Active Substance: BROTIZOLAM
     Dosage: BEFORE SLEEP
     Route: 048
  5. LOXONIN [Concomitant]
     Active Substance: LOXOPROFEN SODIUM
     Dosage: AFTER EVERY MEAL
     Route: 048
  6. FORXIGA [Suspect]
     Active Substance: DAPAGLIFLOZIN
     Indication: TYPE 2 DIABETES MELLITUS
     Dosage: DOSE UNKNOWN
     Route: 048
  7. SEIBULE [Concomitant]
     Active Substance: MIGLITOL
     Route: 048
  8. INSULIN [Concomitant]
     Active Substance: INSULIN NOS
     Route: 048
  9. SUINY [Concomitant]
     Active Substance: ANAGLIPTIN
     Dosage: AFTER BREAKFAST AND EVENING MEAL
     Route: 048

REACTIONS (1)
  - Diabetic ketoacidosis [Unknown]
